FAERS Safety Report 19061830 (Version 1)
Quarter: 2021Q1

REPORT INFORMATION
  Report Type: Spontaneous
  Country: US (occurrence: US)
  Receive Date: 20210325
  Receipt Date: 20210325
  Transmission Date: 20210420
  Serious: Yes (Disabling, Other)
  Sender: FDA-Public Use
  Company Number: None

PATIENT
  Age: 86 Year
  Sex: Male
  Weight: 94.5 kg

DRUGS (5)
  1. CARVEDILOL. [Concomitant]
     Active Substance: CARVEDILOL
  2. ELIQUIS [Suspect]
     Active Substance: APIXABAN
     Indication: THROMBOSIS
     Dosage: ?          QUANTITY:2 TABLET(S);?
     Route: 048
     Dates: start: 20200630, end: 20201109
  3. ELIQUIS [Suspect]
     Active Substance: APIXABAN
     Indication: ATRIAL FIBRILLATION
     Dosage: ?          QUANTITY:2 TABLET(S);?
     Route: 048
     Dates: start: 20200630, end: 20201109
  4. FUROSEMIDE. [Concomitant]
     Active Substance: FUROSEMIDE
  5. IRON [Concomitant]
     Active Substance: IRON

REACTIONS (6)
  - Testicular swelling [None]
  - Peripheral swelling [None]
  - Lower limb fracture [None]
  - Atrial fibrillation [None]
  - Fall [None]
  - Weight increased [None]

NARRATIVE: CASE EVENT DATE: 20200720
